FAERS Safety Report 6058961-3 (Version None)
Quarter: 2009Q1

REPORT INFORMATION
  Report Type: 
  Country: None (occurrence: None)
  Receive Date: 20090130
  Receipt Date: 20090122
  Transmission Date: 20090719
  Serious: Yes (Death, Hospitalization)
  Sender: FDA-Public Use
  Company Number: A0754906A

PATIENT
  Age: 86 Year
  Sex: Male
  Weight: 51.6 kg

DRUGS (6)
  1. VALTREX [Suspect]
     Indication: HERPES ZOSTER
     Dosage: 1000MG THREE TIMES PER DAY
     Route: 048
     Dates: start: 20060609, end: 20060611
  2. COREG [Concomitant]
     Dosage: 6.25MG TWICE PER DAY
     Route: 048
  3. LASIX [Concomitant]
     Dosage: 20MG PER DAY
     Route: 048
  4. ZOCOR [Concomitant]
     Dosage: 20MG AT NIGHT
     Route: 048
  5. HECTOROL [Concomitant]
     Dosage: .5MCG PER DAY
     Route: 048
  6. ASPIRIN [Concomitant]
     Dosage: 81MG PER DAY
     Route: 048

REACTIONS (3)
  - HALLUCINATION [None]
  - INCORRECT DOSE ADMINISTERED [None]
  - RENAL FAILURE [None]
